FAERS Safety Report 24890234 (Version 3)
Quarter: 2025Q3

REPORT INFORMATION
  Report Type: Spontaneous
  Country: JP (occurrence: JP)
  Receive Date: 20250127
  Receipt Date: 20250809
  Transmission Date: 20251020
  Serious: Yes (Death, Hospitalization, Other)
  Sender: ALEXION PHARMACEUTICALS
  Company Number: JP-ASTRAZENECA-250005194_063010_P_1

PATIENT
  Age: 86 Year
  Sex: Male
  Weight: 44 kg

DRUGS (26)
  1. DAPAGLIFLOZIN [Suspect]
     Active Substance: DAPAGLIFLOZIN
     Indication: Cardiac failure chronic
     Dosage: 10 MILLIGRAM, QD
     Dates: start: 20241011
  2. DAPAGLIFLOZIN [Suspect]
     Active Substance: DAPAGLIFLOZIN
     Dosage: 10 MILLIGRAM, QD
     Dates: end: 20241011
  3. ENTRESTO [Concomitant]
     Active Substance: SACUBITRIL\VALSARTAN
     Indication: Cardiac failure chronic
     Dosage: 200 MILLIGRAM, BID
     Dates: end: 20240722
  4. ENTRESTO [Concomitant]
     Active Substance: SACUBITRIL\VALSARTAN
  5. CARVEDILOL [Concomitant]
     Active Substance: CARVEDILOL
     Indication: Cardiac failure chronic
     Dates: end: 20240722
  6. SPIRONOLACTONE [Concomitant]
     Active Substance: SPIRONOLACTONE
     Indication: Cardiac failure chronic
     Dates: end: 20240722
  7. PIMOBENDAN [Concomitant]
     Active Substance: PIMOBENDAN
     Indication: Cardiac failure chronic
     Dosage: 2.5 MILLIGRAM, BID
     Dates: end: 20240721
  8. SAMSCA [Concomitant]
     Active Substance: TOLVAPTAN
     Indication: Cardiac failure chronic
     Dosage: 15 MILLIGRAM, QD
     Dates: end: 20241011
  9. TRICHLORMETHIAZIDE [Concomitant]
     Active Substance: TRICHLORMETHIAZIDE
     Indication: Cardiac failure chronic
     Dates: end: 20241011
  10. ESOMEPRAZOLE [Concomitant]
     Active Substance: ESOMEPRAZOLE
     Indication: Prophylaxis against gastrointestinal ulcer
     Dosage: 20 MILLIGRAM, QD
  11. ESOMEPRAZOLE [Concomitant]
     Active Substance: ESOMEPRAZOLE
  12. ESOMEPRAZOLE [Concomitant]
     Active Substance: ESOMEPRAZOLE
     Dates: end: 20241026
  13. AZOSEMIDE [Concomitant]
     Active Substance: AZOSEMIDE
     Indication: Cardiac failure chronic
     Dosage: 60 MILLIGRAM, QD
     Dates: end: 20241011
  14. FEBUXOSTAT [Concomitant]
     Active Substance: FEBUXOSTAT
     Indication: Hyperuricaemia
     Dosage: 20 MILLIGRAM, QD
  15. FEBUXOSTAT [Concomitant]
     Active Substance: FEBUXOSTAT
  16. FEBUXOSTAT [Concomitant]
     Active Substance: FEBUXOSTAT
  17. PANCRELIPASE [Concomitant]
     Active Substance: PANCRELIPASE
     Indication: Pancreatogenous diabetes
     Dosage: 600 MILLIGRAM, BID
  18. PANCRELIPASE [Concomitant]
     Active Substance: PANCRELIPASE
  19. PANCRELIPASE [Concomitant]
     Active Substance: PANCRELIPASE
  20. PANCRELIPASE [Concomitant]
     Active Substance: PANCRELIPASE
  21. FUROSEMIDE [Concomitant]
     Active Substance: FUROSEMIDE
     Indication: Cardiac failure chronic
     Dosage: 20 MILLIGRAM, QD
     Dates: end: 20240622
  22. FUROSEMIDE [Concomitant]
     Active Substance: FUROSEMIDE
  23. CALONAL [Concomitant]
     Active Substance: ACETAMINOPHEN
     Indication: Back pain
  24. CALONAL [Concomitant]
     Active Substance: ACETAMINOPHEN
     Dates: end: 20241026
  25. SODIUM FERROUS CITRATE [Concomitant]
     Active Substance: SODIUM FERROUS CITRATE
     Indication: Iron deficiency anaemia
  26. SODIUM FERROUS CITRATE [Concomitant]
     Active Substance: SODIUM FERROUS CITRATE
     Dates: end: 20241005

REACTIONS (8)
  - Cardiac failure chronic [Fatal]
  - Renal impairment [Not Recovered/Not Resolved]
  - N-terminal prohormone brain natriuretic peptide increased [Unknown]
  - Blood potassium increased [Unknown]
  - Blood urea increased [Unknown]
  - Hyperuricaemia [Unknown]
  - Back pain [Unknown]
  - Iron deficiency anaemia [Unknown]

NARRATIVE: CASE EVENT DATE: 20230301
